FAERS Safety Report 14426112 (Version 1)
Quarter: 2018Q1

REPORT INFORMATION
  Report Type: Report from Study
  Country: CO (occurrence: CO)
  Receive Date: 20180123
  Receipt Date: 20180123
  Transmission Date: 20180509
  Serious: Yes (Other)
  Sender: FDA-Public Use
  Company Number: PHHY2017CO125840

PATIENT
  Age: 63 Year
  Sex: Female
  Weight: 64 kg

DRUGS (2)
  1. AFINITOR [Suspect]
     Active Substance: EVEROLIMUS
     Indication: BREAST CANCER
     Dosage: 5 MG, BID
     Route: 048
     Dates: start: 20170726
  2. AROMASIN [Concomitant]
     Active Substance: EXEMESTANE
     Indication: PRODUCT USED FOR UNKNOWN INDICATION
     Dosage: UNK
     Route: 065

REACTIONS (9)
  - Erythema [Unknown]
  - Dermatitis [Unknown]
  - Tooth loss [Unknown]
  - Oral mucosal exfoliation [Unknown]
  - Headache [Unknown]
  - Onychoclasis [Unknown]
  - Blindness [Unknown]
  - Rash generalised [Unknown]
  - Asthenia [Unknown]

NARRATIVE: CASE EVENT DATE: 20170812
